FAERS Safety Report 7730932-8 (Version None)
Quarter: 2011Q3

REPORT INFORMATION
  Report Type: 
  Country: None (occurrence: None)
  Receive Date: 20110906
  Receipt Date: 20110830
  Transmission Date: 20111222
  Serious: Yes (Hospitalization)
  Sender: FDA-Public Use
  Company Number: FR-SANOFI-AVENTIS-2011SA055546

PATIENT
  Age: 59 Year
  Sex: Male

DRUGS (10)
  1. PREVISCAN [Suspect]
     Indication: CARDIOVASCULAR EVENT PROPHYLAXIS
     Route: 048
     Dates: end: 20110803
  2. BISOPROLOL FUMARATE [Concomitant]
     Route: 048
  3. OXAZEPAM [Concomitant]
     Indication: ANXIETY
     Route: 048
  4. FUROSEMIDE [Concomitant]
     Route: 048
  5. RAMIPRIL [Concomitant]
     Route: 048
     Dates: start: 20110701
  6. ALDACTONE [Concomitant]
     Route: 048
     Dates: start: 20110701
  7. PLAVIX [Suspect]
     Indication: CARDIOVASCULAR EVENT PROPHYLAXIS
     Route: 048
     Dates: start: 20110701
  8. ATORVASTATIN CALCIUM [Concomitant]
     Route: 048
     Dates: start: 20110701
  9. ASPIRIN [Suspect]
     Indication: CARDIOVASCULAR EVENT PROPHYLAXIS
     Route: 048
     Dates: start: 20110701
  10. IRON/VITAMIN B1/VITAMIN B12/VITAMIN B6 [Concomitant]
     Route: 048
     Dates: start: 20110701

REACTIONS (2)
  - HAEMARTHROSIS [None]
  - INTERNATIONAL NORMALISED RATIO INCREASED [None]
